FAERS Safety Report 4836642-9 (Version None)
Quarter: 2005Q4

REPORT INFORMATION
  Report Type: 
  Country: None (occurrence: None)
  Receive Date: 20051121
  Receipt Date: 20051107
  Transmission Date: 20060501
  Serious: Yes (Hospitalization, Other)
  Sender: FDA-Public Use
  Company Number: USA-2005-0020846

PATIENT
  Sex: Female

DRUGS (23)
  1. OXYCONTIN [Suspect]
     Indication: PAIN
     Dosage: SEE IMAGE
  2. NEURONTIN [Concomitant]
  3. XANAX [Concomitant]
  4. PRILOSEC [Concomitant]
  5. BUSPAR [Concomitant]
  6. CALAN [Concomitant]
  7. ZOLOFT [Concomitant]
  8. PREMARIN [Concomitant]
  9. VERAPAMIL [Concomitant]
  10. PHENERGAN [Concomitant]
  11. LOMOTIL [Concomitant]
  12. FOSAMAX [Concomitant]
  13. COMBIVENT [Concomitant]
  14. BACTRIM DS [Concomitant]
  15. REGLAN [Concomitant]
  16. FLEXERIL [Concomitant]
  17. ALBUTEROL [Concomitant]
  18. ATIVAN [Concomitant]
  19. SOLU-MEDROL [Concomitant]
  20. ZONEGRAN [Concomitant]
  21. DIFLUCAN (FLUCONAZOLE) [Concomitant]
  22. BENADRYL [Concomitant]
  23. PREVACID [Concomitant]

REACTIONS (44)
  - ABDOMINAL DISTENSION [None]
  - ANXIETY [None]
  - ARTHRALGIA [None]
  - ASTHMA [None]
  - BACK PAIN [None]
  - CAROTID ARTERY STENOSIS [None]
  - CAROTID BRUIT [None]
  - CARPAL TUNNEL SYNDROME [None]
  - CHEST PAIN [None]
  - CHRONIC OBSTRUCTIVE PULMONARY DISEASE [None]
  - CONSTIPATION [None]
  - COUGH [None]
  - DEHYDRATION [None]
  - DELUSIONAL DISORDER, UNSPECIFIED TYPE [None]
  - DEPRESSION [None]
  - DRUG DEPENDENCE [None]
  - DRUG TOLERANCE [None]
  - DRUG WITHDRAWAL SYNDROME [None]
  - FLANK PAIN [None]
  - HEADACHE [None]
  - HYDRONEPHROSIS [None]
  - HYPOXIA [None]
  - INFLUENZA SEROLOGY POSITIVE [None]
  - MIGRAINE [None]
  - NAUSEA [None]
  - NECK PAIN [None]
  - OBSESSIVE-COMPULSIVE DISORDER [None]
  - OEDEMA PERIPHERAL [None]
  - PAIN [None]
  - PAIN IN EXTREMITY [None]
  - PARANOIA [None]
  - PELVIC PAIN [None]
  - PERITONEAL ADHESIONS [None]
  - PLEURAL EFFUSION [None]
  - PULMONARY CONGESTION [None]
  - RESPIRATORY RATE INCREASED [None]
  - SALPINGITIS [None]
  - SHOULDER PAIN [None]
  - SINUS CONGESTION [None]
  - SINUS DISORDER [None]
  - SINUS TACHYCARDIA [None]
  - STATUS ASTHMATICUS [None]
  - TRIGGER FINGER [None]
  - VOMITING [None]
